FAERS Safety Report 21224693 (Version 1)
Quarter: 2022Q3

REPORT INFORMATION
  Report Type: Spontaneous
  Country: US (occurrence: US)
  Receive Date: 20220817
  Receipt Date: 20220817
  Transmission Date: 20221027
  Serious: No
  Sender: FDA-Public Use
  Company Number: US-OTSUKA-2022_025086

PATIENT
  Sex: Female
  Weight: 90.72 kg

DRUGS (1)
  1. ABILIFY [Suspect]
     Active Substance: ARIPIPRAZOLE
     Indication: Product used for unknown indication
     Dosage: UNK, QD (SMALL PILL AT NIGHT)
     Route: 065

REACTIONS (5)
  - Stress [Unknown]
  - Disorientation [Unknown]
  - Feeling abnormal [Unknown]
  - Depressed mood [Unknown]
  - Somnolence [Unknown]
